FAERS Safety Report 24300646 (Version 1)
Quarter: 2024Q3

REPORT INFORMATION
  Report Type: Spontaneous
  Country: MY (occurrence: MY)
  Receive Date: 20240910
  Receipt Date: 20240910
  Transmission Date: 20241017
  Serious: Yes (Hospitalization, Other)
  Sender: BRISTOL MYERS SQUIBB
  Company Number: MY-BRISTOL-MYERS SQUIBB COMPANY-2024-142813

PATIENT
  Sex: Male

DRUGS (2)
  1. REBLOZYL [Suspect]
     Active Substance: LUSPATERCEPT-AAMT
     Indication: Myelodysplastic syndrome
  2. REBLOZYL [Suspect]
     Active Substance: LUSPATERCEPT-AAMT

REACTIONS (1)
  - Oesophageal candidiasis [Unknown]
